FAERS Safety Report 19633709 (Version 3)
Quarter: 2021Q3

REPORT INFORMATION
  Report Type: Spontaneous
  Country: US (occurrence: US)
  Receive Date: 20210730
  Receipt Date: 20210819
  Transmission Date: 20211014
  Serious: Yes (Other)
  Sender: FDA-Public Use
  Company Number: US-AMGEN-USASP2021115198

PATIENT
  Sex: Female

DRUGS (1)
  1. KANJINTI [Suspect]
     Active Substance: TRASTUZUMAB-ANNS
     Indication: BREAST CANCER STAGE I
     Dosage: UNK UNK, Q3WK
     Route: 065
     Dates: start: 202103

REACTIONS (2)
  - Pulmonary congestion [Not Recovered/Not Resolved]
  - Fungal infection [Not Recovered/Not Resolved]
